FAERS Safety Report 15355823 (Version 1)
Quarter: 2018Q3

REPORT INFORMATION
  Report Type: Spontaneous
  Country: ZA (occurrence: ZA)
  Receive Date: 20180906
  Receipt Date: 20180906
  Transmission Date: 20181010
  Serious: Yes (Hospitalization, Other)
  Sender: FDA-Public Use
  Company Number: ZA-BAYER-2018-116303

PATIENT
  Age: 25 Year
  Sex: Female
  Weight: 56 kg

DRUGS (1)
  1. YAZ [Suspect]
     Active Substance: DROSPIRENONE\ETHINYL ESTRADIOL
     Indication: CONTRACEPTION
     Dosage: UNK
     Route: 048
     Dates: start: 20130601, end: 20180520

REACTIONS (6)
  - Brain oedema [Recovering/Resolving]
  - Hemianopia [None]
  - Cerebral thrombosis [None]
  - Ischaemic stroke [None]
  - Motor dysfunction [Recovering/Resolving]
  - Cerebral haemorrhage [None]

NARRATIVE: CASE EVENT DATE: 20180520
